FAERS Safety Report 21244532 (Version 1)
Quarter: 2022Q3

REPORT INFORMATION
  Report Type: Spontaneous
  Country: AU (occurrence: AU)
  Receive Date: 20220823
  Receipt Date: 20220823
  Transmission Date: 20221027
  Serious: Yes (Other)
  Sender: FDA-Public Use
  Company Number: AU-BAXTER-2022BAX017801

PATIENT
  Sex: Female

DRUGS (10)
  1. DOXORUBICIN [Suspect]
     Active Substance: DOXORUBICIN
     Indication: Diffuse large B-cell lymphoma
     Dosage: 6 CYCLE OF RCHOP REGIMEN
     Route: 065
     Dates: start: 2018
  2. CYCLOPHOSPHAMIDE [Suspect]
     Active Substance: CYCLOPHOSPHAMIDE
     Indication: Diffuse large B-cell lymphoma
     Dosage: 6 CYCLES OF RCVP REGIMEN
     Route: 065
     Dates: start: 2011
  3. CYCLOPHOSPHAMIDE [Suspect]
     Active Substance: CYCLOPHOSPHAMIDE
     Indication: Marginal zone lymphoma
     Dosage: 6 CYCLES OF RCHOP REGIMEN
     Route: 065
     Dates: start: 2018
  4. RITUXIMAB [Suspect]
     Active Substance: RITUXIMAB
     Indication: Diffuse large B-cell lymphoma
     Dosage: 6 CYCLES OF RCVP REGIMEN
     Route: 065
     Dates: start: 2011
  5. RITUXIMAB [Suspect]
     Active Substance: RITUXIMAB
     Indication: Marginal zone lymphoma
     Dosage: 6 CYCLES OF RCHOP REGIMEN
     Route: 065
     Dates: start: 2018
  6. VINCRISTINE [Suspect]
     Active Substance: VINCRISTINE
     Indication: Diffuse large B-cell lymphoma
     Dosage: 6 CYCLES OF RCVP REGIMEN
     Route: 065
     Dates: start: 2011
  7. VINCRISTINE [Suspect]
     Active Substance: VINCRISTINE
     Indication: Marginal zone lymphoma
     Dosage: 6 CYCLES OF RCHOP REGIMEN
     Route: 065
     Dates: start: 2018
  8. PREDNISONE [Suspect]
     Active Substance: PREDNISONE
     Indication: Diffuse large B-cell lymphoma
     Dosage: 6 CYCLES OF RCVP REGIMEN
     Route: 065
     Dates: start: 2011
  9. PREDNISONE [Suspect]
     Active Substance: PREDNISONE
     Indication: Marginal zone lymphoma
     Dosage: 6 CYCLES OF RCHOP REGIMEN
     Route: 065
     Dates: start: 2018
  10. METHOTREXATE [Suspect]
     Active Substance: METHOTREXATE
     Indication: Diffuse large B-cell lymphoma
     Dosage: UNK
     Route: 065
     Dates: start: 2018

REACTIONS (2)
  - Hepatosplenomegaly [Unknown]
  - Marginal zone lymphoma [Unknown]
